FAERS Safety Report 10233520 (Version 1)
Quarter: 2014Q2

REPORT INFORMATION
  Report Type: Spontaneous
  Country: CN (occurrence: None)
  Receive Date: 20140610
  Receipt Date: 20140610
  Transmission Date: 20141212
  Serious: Yes (Death)
  Sender: FDA-Public Use
  Company Number: 2014CN00506

PATIENT
  Sex: Male

DRUGS (2)
  1. IRINOTECAN [Suspect]
     Indication: HEPATOBLASTOMA RECURRENT
     Dosage: 50 MG/M2, QD DAY 1-5 EVERY 3 WEEKS
  2. VINCRISTINE [Suspect]
     Indication: HEPATOBLASTOMA RECURRENT
     Dosage: DAY 1, REPEATED EVERY 3 WEEKS

REACTIONS (2)
  - Malignant neoplasm progression [None]
  - Hepatoblastoma recurrent [None]
